FAERS Safety Report 6753359-4 (Version None)
Quarter: 2010Q2

REPORT INFORMATION
  Report Type: 
  Country: None (occurrence: None)
  Receive Date: 20100603
  Receipt Date: 20100525
  Transmission Date: 20101027
  Serious: Yes (Hospitalization)
  Sender: FDA-Public Use
  Company Number: CH-SANOFI-AVENTIS-2010SA030624

PATIENT
  Age: 84 Year
  Sex: Female
  Weight: 74 kg

DRUGS (8)
  1. ZOLPIDEM [Suspect]
     Indication: DRUG USE FOR UNKNOWN INDICATION
     Route: 048
     Dates: start: 20100421, end: 20100505
  2. CIPROFLOXACIN [Suspect]
     Route: 048
     Dates: start: 20100428, end: 20100503
  3. DAFALGAN [Suspect]
     Indication: Q FEVER
     Route: 048
     Dates: start: 20100427, end: 20100505
  4. REMERON [Suspect]
     Indication: DRUG USE FOR UNKNOWN INDICATION
     Route: 048
     Dates: start: 20100426, end: 20100502
  5. DISTRANEURINE [Concomitant]
     Indication: DRUG USE FOR UNKNOWN INDICATION
     Route: 048
     Dates: start: 20100413
  6. ESCITALOPRAM OXALATE [Concomitant]
     Indication: DRUG USE FOR UNKNOWN INDICATION
     Route: 048
     Dates: start: 20100414, end: 20100426
  7. TRANXILIUM [Concomitant]
     Indication: DRUG USE FOR UNKNOWN INDICATION
     Route: 048
     Dates: start: 20100413, end: 20100425
  8. TORASEMIDE [Concomitant]
     Indication: DRUG USE FOR UNKNOWN INDICATION
     Route: 048
     Dates: start: 20100415, end: 20100430

REACTIONS (2)
  - CHOLESTATIC LIVER INJURY [None]
  - RENAL FAILURE [None]
